FAERS Safety Report 15710116 (Version 4)
Quarter: 2024Q1

REPORT INFORMATION
  Report Type: Other
  Country: DE (occurrence: DE)
  Receive Date: 20181211
  Receipt Date: 20240112
  Transmission Date: 20240410
  Serious: Yes (Life-Threatening, Other)
  Sender: FDA-Public Use
  Company Number: DE-DENTSPLY-2018SCDP000523

PATIENT
  Age: 86 Year
  Sex: Female
  Weight: 56 kg

DRUGS (66)
  1. XYLOCAINE [Suspect]
     Active Substance: LIDOCAINE HYDROCHLORIDE
     Indication: Local anaesthesia
     Dosage: UNK DOSE OF XYLOCAINE SOLUTION FOR INJECTION
     Route: 058
     Dates: start: 20000913, end: 20000913
  2. LIDOCAINE [Suspect]
     Active Substance: LIDOCAINE
     Indication: Local anaesthesia
     Dosage: UNK
     Route: 058
     Dates: start: 20000913, end: 20000913
  3. DIAZEPAM [Suspect]
     Active Substance: DIAZEPAM
     Indication: Sedation
     Dosage: UNK (ENDOTRACHEOPULMONARY USE) DESITIN
     Route: 042
     Dates: start: 20000913, end: 20000913
  4. VIOXX [Suspect]
     Active Substance: ROFECOXIB
     Indication: Rheumatic disorder
     Dosage: 25 MILLIGRAM, QD (CUMULATIVE DOSE: 250 MG)
     Route: 048
     Dates: start: 20000907, end: 20000917
  5. CLONIDINE [Suspect]
     Active Substance: CLONIDINE
     Indication: Coronary artery disease
     Dosage: UNK
     Route: 042
     Dates: start: 20000913, end: 20000913
  6. CLONIDINE [Suspect]
     Active Substance: CLONIDINE
     Indication: Hypertension
     Dosage: 8 MILLIGRAM, QD (CUMULATIVE DOSE: 208 MG)
     Route: 048
     Dates: start: 20000820, end: 20000914
  7. ASPIRIN [Suspect]
     Active Substance: ASPIRIN
     Indication: Coagulopathy
     Dosage: 100 MG, QD (CUMULATIVE DOSE: 700 MG)
     Route: 048
     Dates: start: 20000914, end: 20000917
  8. ASPIRIN [Suspect]
     Active Substance: ASPIRIN
     Dosage: 100 MG, QD (CUMULATIVE DOSE: 700 MG)
     Route: 048
     Dates: start: 20000828, end: 20000831
  9. LORMETAZEPAM [Suspect]
     Active Substance: LORMETAZEPAM
     Indication: Sedative therapy
     Dosage: 2 DOSAGE FORM, QD NOCTAMID SUSPENSION AEROSOL/POWDER FOR ORAL SUSPENSION (1 DOSE DAILY SUSPENSION AE
     Route: 048
     Dates: start: 20000913, end: 20000913
  10. GLYBURIDE [Suspect]
     Active Substance: GLYBURIDE
     Indication: Diabetes mellitus
     Dosage: 3 DOSAGE FORM
     Route: 048
     Dates: start: 20000820, end: 20000917
  11. NOREPINEPHRINE [Suspect]
     Active Substance: NOREPINEPHRINE
     Indication: Coronary artery disease
     Dosage: 8 MILLIGRAM, QD (CUMULATIVE DOSE) LEVARTERENOL INJECTION
     Route: 042
     Dates: start: 20000913, end: 20000913
  12. NOREPINEPHRINE [Suspect]
     Active Substance: NOREPINEPHRINE
     Indication: Local anaesthesia
     Dosage: 8 MILLIGRAM, QD
     Route: 042
     Dates: start: 20000913, end: 20000913
  13. NOVALGIN (METAMIZOLE SODIUM) [Suspect]
     Active Substance: METAMIZOLE SODIUM
     Indication: Pain
     Dosage: 20 DROP, QD (GTT) FOR 4 WEEKS (CUMULATIVE DOSE: 560 DROPS)
     Route: 048
     Dates: start: 20000820, end: 20000917
  14. NOVALGIN (METAMIZOLE SODIUM) [Suspect]
     Active Substance: METAMIZOLE SODIUM
     Indication: General symptom
     Dosage: UNK
     Route: 065
  15. NOVALGIN (METAMIZOLE SODIUM) [Suspect]
     Active Substance: METAMIZOLE SODIUM
     Indication: Thrombosis prophylaxis
  16. PLAVIX [Suspect]
     Active Substance: CLOPIDOGREL BISULFATE
     Indication: Coagulopathy
     Dosage: 75 MILLIGRAM, QD (CUMULATIVE DOSE: 4 DF)
     Route: 048
     Dates: start: 20000913, end: 20000917
  17. PLAVIX [Suspect]
     Active Substance: CLOPIDOGREL BISULFATE
     Indication: Thrombosis prophylaxis
  18. CLEMASTINE FUMARATE [Suspect]
     Active Substance: CLEMASTINE FUMARATE
     Indication: Pemphigoid
     Dosage: 4 DOSAGE FORM OF TAVEGIL TABLET (CUMULATIVE DOSE: 18 DF)
     Route: 048
     Dates: start: 20000820, end: 20000828
  19. CLEMASTINE FUMARATE [Suspect]
     Active Substance: CLEMASTINE FUMARATE
     Dosage: 2 DOSAGE FORM, QD TAVEGIL TABLET (CUMULATIVE DOSE: 18 DF)
     Route: 048
     Dates: start: 20000820, end: 20000828
  20. PREDNISOLONE [Suspect]
     Active Substance: PREDNISOLONE
     Indication: Dermatitis bullous
     Dosage: 40 MILLIGRAM, QD (CUMULATIVE DOSE: 1740 MG)
     Route: 048
  21. PREDNISOLONE [Suspect]
     Active Substance: PREDNISOLONE
     Indication: Pemphigoid
     Dosage: 80 MILLIGRAM, QD  (CUMULATIVE DOSE: 1740 MG)
     Route: 048
  22. PREDNISOLONE [Suspect]
     Active Substance: PREDNISOLONE
     Dosage: 50 MILLIGRAM, QD (CUMULATIVE DOSE: 1740 MG)
     Route: 048
  23. PREDNISOLONE [Suspect]
     Active Substance: PREDNISOLONE
     Dosage: 60 MILLIGRAM, QD (CUMULATIVE DOSE: 1740 MG)
     Route: 048
     Dates: start: 20000820, end: 20000917
  24. PREDNISOLONE [Suspect]
     Active Substance: PREDNISOLONE
     Dosage: 60 MILLIGRAM, QD
     Route: 048
  25. PREDNISOLONE [Suspect]
     Active Substance: PREDNISOLONE
     Dosage: 1740 MILLIGRAM, QD (CUMULATIVE DOSE: 52080 MG)
     Route: 048
     Dates: start: 20000820, end: 20000917
  26. ASPIRIN [Suspect]
     Active Substance: ASPIRIN
     Indication: Coagulopathy
     Dosage: 100 MILLIGRAM, QD (CUMULATIVE DOSE: 800 MG)
     Route: 048
     Dates: start: 20000914, end: 20000917
  27. ASPIRIN [Suspect]
     Active Substance: ASPIRIN
     Dosage: 100 MILLIGRAM, QD (CUMULATIVE DOSE: 800 MG)
     Route: 048
     Dates: start: 20000828, end: 20000831
  28. TORSEMIDE [Suspect]
     Active Substance: TORSEMIDE
     Indication: Cardiac failure
     Dosage: 5 MILLIGRAM, QD (CUMULATIVE DOSE: 140 MG)
     Route: 048
     Dates: start: 20000820, end: 20000917
  29. ISOSORBIDE MONONITRATE [Suspect]
     Active Substance: ISOSORBIDE MONONITRATE
     Indication: Angina pectoris
     Dosage: 1 DOSAGE FORM, QD (CUMULATIVE DOSE: 28 DF) MONO MACK DEPOT
     Route: 048
     Dates: start: 20000820, end: 20000917
  30. ESTRIOL [Suspect]
     Active Substance: ESTRIOL
     Indication: Vulvovaginal disorder
     Dosage: 1 DOSAGE FORM, QD (CUMULATIVE DOSE; 18 DF) ORTHO-GYNEST POWDER AND SOLVENT FOR SOLUTION FOR INJECTIO
     Route: 067
     Dates: start: 20000820, end: 20000906
  31. INSULIN NOS [Suspect]
     Active Substance: INSULIN NOS
     Indication: Diabetes mellitus
     Dosage: UNK (SUBCUTANEOUS EXCEPT ON 13-SEP-2000 WHEN GIVEN INTRAVENOUSLY)
     Route: 042
     Dates: start: 20000913, end: 20000913
  32. INSULIN NOS [Suspect]
     Active Substance: INSULIN NOS
     Dosage: UNK (SUBCUTANEOUS EXCEPT ON 13-SEP-2000 WHEN GIVEN INTRAVENOUSLY)
     Route: 058
     Dates: start: 20000820, end: 20000917
  33. MOLSIDOMINE [Suspect]
     Active Substance: MOLSIDOMINE
     Indication: Coronary artery disease
     Dosage: 8 MILLIGRAM, QD (CUMULATIVE DOSE: 208 MG)
     Route: 048
     Dates: start: 20000820, end: 20000914
  34. FRAGMIN [Suspect]
     Active Substance: DALTEPARIN SODIUM
     Indication: Coagulopathy
     Dosage: UNK
     Route: 058
     Dates: start: 20000820, end: 20000917
  35. FRAGMIN [Suspect]
     Active Substance: DALTEPARIN SODIUM
     Indication: Thrombosis prophylaxis
  36. FENTANYL [Suspect]
     Active Substance: FENTANYL\FENTANYL CITRATE
     Indication: Pain
     Dosage: 50 MICROGRAM PER 1 HOUR (50 MCG, MCGS PER INHALATION, 72 - EVERY HOUR) (CUMULATIVE DOSE; 9 DF)
     Route: 062
  37. FENTANYL [Suspect]
     Active Substance: FENTANYL\FENTANYL CITRATE
     Dosage: 150 DOSAGE FORM PER 3 DAYS (CUMULATIVE DOSE; 9 DF)
     Route: 062
     Dates: start: 20000820, end: 20000916
  38. FENTANYL [Suspect]
     Active Substance: FENTANYL\FENTANYL CITRATE
     Dosage: 125 MICROGRAM PER HOUR (125 MCGS PER INHALATION) (CUMULATIVE DOSE; 9 DF)
     Route: 062
  39. FENTANYL [Suspect]
     Active Substance: FENTANYL\FENTANYL CITRATE
     Dosage: 150 MICROGRAM PER HOUR (150 MCGS PER INHALATION, 72 - EVERY HOUR) (CUMULATIVE DOSE; 9 DF)
     Route: 062
  40. FENTANYL [Suspect]
     Active Substance: FENTANYL\FENTANYL CITRATE
     Dosage: 50 MICROGRAM PER 3 DAYS (50 MCG, MICROGRAMS PER INHALATION, 72-EVERY HOUR)
     Route: 062
  41. FENTANYL [Suspect]
     Active Substance: FENTANYL\FENTANYL CITRATE
     Dosage: 450 DOSAGE FORM, QD (150 DOSAGE FORM, 3 DOSE DAILY)
     Route: 062
     Dates: start: 20000820, end: 20000916
  42. FENTANYL [Suspect]
     Active Substance: FENTANYL\FENTANYL CITRATE
     Dosage: 1 DOSAGE FORM PER 3 DAYS
     Route: 062
     Dates: start: 20000820, end: 20000916
  43. FENTANYL [Suspect]
     Active Substance: FENTANYL\FENTANYL CITRATE
     Dosage: 3 DOSAGE FORM, QD
     Route: 062
     Dates: start: 20000820, end: 20000916
  44. NORTRIPTYLINE [Suspect]
     Active Substance: NORTRIPTYLINE
     Indication: Coronary artery disease
     Dosage: 75 MILLIGRAM, QD
     Route: 042
     Dates: start: 20000913, end: 20000913
  45. NOREPINEPHRINE [Suspect]
     Active Substance: NOREPINEPHRINE
     Indication: Coronary artery disease
     Dosage: 3 DOSAGE FORM
     Route: 042
     Dates: start: 20000913, end: 20000913
  46. OMEPRAZOLE [Suspect]
     Active Substance: OMEPRAZOLE
     Indication: Prophylaxis against gastrointestinal ulcer
     Dosage: 20 MILLIGRAM, QD (CUMULATIVE DOSE: 560 MG)
     Route: 048
     Dates: start: 20000820, end: 20000917
  47. MOLSIDOMINE [Suspect]
     Active Substance: MOLSIDOMINE
     Indication: Coronary artery disease
     Dosage: 8 MILLIGRAM, QD (CUMULATIVE DOSE: 208 MG) CORVATON RETARD
     Route: 048
     Dates: start: 20000820, end: 20000914
  48. GLYBURIDE [Suspect]
     Active Substance: GLYBURIDE
     Indication: Diabetes mellitus
     Dosage: 3 DOSAGE FORM
     Route: 048
     Dates: start: 20000820, end: 20000917
  49. LORMETAZEPAM [Suspect]
     Active Substance: LORMETAZEPAM
     Indication: Sedation
     Dosage: 2 DOSAGE FORM, QD (CUMULATIVE DOSE: 2 DF)
     Route: 048
     Dates: start: 20000913, end: 20000913
  50. TORSEMIDE [Suspect]
     Active Substance: TORSEMIDE
     Indication: Cardiac failure
     Dosage: 5 MILLIGRAM, QD (CUMULATIVE DOSE: 140 MG)
     Route: 048
     Dates: start: 20000820, end: 20000917
  51. DEXTROSE [Concomitant]
     Active Substance: DEXTROSE\DEXTROSE MONOHYDRATE
     Indication: Cardiovascular disorder
     Dosage: UNK DOSE OF 5% GLUCOSE
     Route: 042
     Dates: start: 20000913, end: 20000913
  52. DEXTROSE [Concomitant]
     Active Substance: DEXTROSE\DEXTROSE MONOHYDRATE
     Indication: Diabetes mellitus
  53. COTRIM [Concomitant]
     Active Substance: SULFAMETHOXAZOLE\TRIMETHOPRIM
     Indication: Urinary tract infection
     Dosage: 1 DOSAGE FORM, QD (CUMULATIVE DOSE: 1 DF)
     Route: 048
     Dates: start: 20000916, end: 20000917
  54. CALCIUM [Concomitant]
     Active Substance: CALCIUM
     Indication: Osteoporosis
     Dosage: 1 DOSAGE FORM, QD (CUMULATIVE DOSE: 29 DF)
     Route: 048
     Dates: start: 20000820, end: 20000917
  55. RINGER^S SOLUTION [CALCIUM CHLORIDE;POTASSIUM CHLORIDE] [Concomitant]
     Indication: Fluid retention
     Dosage: UNK DOSE OF RINGER^S IRRIGATION (BAXTER HEALTHCARE RINGERS)
     Route: 042
     Dates: start: 20000913, end: 20000914
  56. RINGER^S SOLUTION [CALCIUM CHLORIDE;POTASSIUM CHLORIDE] [Concomitant]
     Indication: Electrolyte depletion
  57. OMEPRAZOLE [Concomitant]
     Active Substance: OMEPRAZOLE
     Indication: Prophylaxis against gastrointestinal ulcer
     Dosage: 20 MILLIGRAM, QD
     Route: 048
     Dates: start: 20000820, end: 20000917
  58. POTASSIUM CHLORIDE [Concomitant]
     Active Substance: POTASSIUM CHLORIDE
     Indication: Electrolyte depletion
     Dosage: UNK DOSE OF POTASSIUM CHLORIDE INJECTION
     Route: 042
     Dates: start: 20000913, end: 20000914
  59. POTASSIUM CHLORIDE [Concomitant]
     Active Substance: POTASSIUM CHLORIDE
     Indication: Fluid retention
     Dosage: UNK DOSE OF POTASSIUM CHLORIDE TABLET
     Route: 048
     Dates: start: 20000820, end: 20000917
  60. POTASSIUM CHLORIDE [Concomitant]
     Active Substance: POTASSIUM CHLORIDE
     Indication: Diabetes mellitus
  61. CALCIUM CHLORIDE [Concomitant]
     Active Substance: CALCIUM CHLORIDE
     Indication: Fluid retention
     Dosage: UNK
     Route: 042
     Dates: start: 20230913, end: 20230914
  62. CALCIUM CHLORIDE [Concomitant]
     Active Substance: CALCIUM CHLORIDE
     Indication: Electrolyte depletion
     Dosage: 1 DOSAGE FORM, QD CALCIUM CHLORIDE INJECTION
     Route: 048
     Dates: start: 20000820, end: 20000917
  63. CALCIUM CHLORIDE [Concomitant]
     Active Substance: CALCIUM CHLORIDE
     Indication: Osteoporosis
  64. SODIUM CHLORIDE [Concomitant]
     Active Substance: SODIUM CHLORIDE
     Indication: Electrolyte depletion
     Dosage: UNK
     Route: 042
     Dates: start: 20000913, end: 20000914
  65. CALCIUM GLUCONATE [Concomitant]
     Active Substance: CALCIUM GLUCONATE
     Indication: Osteoporosis
     Dosage: 1 DOSAGE FORM, QD (CUMULATIVE DOSE: 28 DF)
     Route: 048
     Dates: start: 20000820, end: 20000917
  66. SULFAMETHOXAZOLE [Concomitant]
     Active Substance: SULFAMETHOXAZOLE
     Indication: Urinary tract infection
     Dosage: UNK
     Route: 065
     Dates: start: 20000916, end: 20000917

REACTIONS (6)
  - Genital erosion [Recovered/Resolved]
  - Blister [Recovered/Resolved]
  - Mouth ulceration [Recovered/Resolved]
  - Toxic epidermal necrolysis [Recovered/Resolved]
  - Erythema [Recovered/Resolved]
  - Conjunctivitis [Recovered/Resolved]

NARRATIVE: CASE EVENT DATE: 20000916
